FAERS Safety Report 21692260 (Version 1)
Quarter: 2022Q4

REPORT INFORMATION
  Report Type: Spontaneous
  Country: GB (occurrence: GB)
  Receive Date: 20221207
  Receipt Date: 20221207
  Transmission Date: 20230112
  Serious: Yes (Other)
  Sender: FDA-Public Use
  Company Number: None

PATIENT
  Age: 14 Month
  Sex: Female

DRUGS (2)
  1. LACOSAMIDE [Suspect]
     Active Substance: LACOSAMIDE
     Dosage: DOSE: 300 MG, DAY AND NIGHT, TABLET
     Route: 064
     Dates: start: 2014
  2. FOLIC ACID [Concomitant]
     Active Substance: FOLIC ACID
     Dosage: DOSE: 5 MG
     Route: 064

REACTIONS (2)
  - Foetal exposure during pregnancy [Unknown]
  - Speech disorder [Unknown]
